FAERS Safety Report 10451810 (Version 1)
Quarter: 2014Q3

REPORT INFORMATION
  Report Type: Spontaneous
  Country: US (occurrence: US)
  Receive Date: 20140915
  Receipt Date: 20140915
  Transmission Date: 20150326
  Serious: Yes (Other)
  Sender: FDA-Public Use
  Company Number: US-PFIZER INC-2014251503

PATIENT
  Age: 57 Year
  Sex: Male
  Weight: 74.83 kg

DRUGS (1)
  1. MEDROL [Suspect]
     Active Substance: METHYLPREDNISOLONE
     Dosage: UNK,SINGLE
     Dates: start: 2007, end: 2007

REACTIONS (3)
  - Erectile dysfunction [Unknown]
  - Prostatic specific antigen increased [Unknown]
  - Prostate cancer [Unknown]
